FAERS Safety Report 7000442-4 (Version None)
Quarter: 2010Q3

REPORT INFORMATION
  Report Type: 
  Country: None (occurrence: None)
  Receive Date: 20100920
  Receipt Date: 20090812
  Transmission Date: 20110219
  Serious: No
  Sender: FDA-Public Use
  Company Number: US-ASTRAZENECA-2009SE07734

PATIENT
  Sex: Male
  Weight: 117.9 kg

DRUGS (4)
  1. SEROQUEL [Suspect]
     Route: 048
  2. WELLBUTRIN [Concomitant]
  3. INDERAL [Concomitant]
  4. PROZAC [Concomitant]

REACTIONS (2)
  - INCORRECT DOSE ADMINISTERED [None]
  - INITIAL INSOMNIA [None]
